FAERS Safety Report 5146188-9 (Version None)
Quarter: 2006Q4

REPORT INFORMATION
  Report Type: 
  Country: None (occurrence: None)
  Receive Date: 20061108
  Receipt Date: 20061027
  Transmission Date: 20070319
  Serious: Yes (Other)
  Sender: FDA-Public Use
  Company Number: GB-ROCHE-469614

PATIENT
  Age: 29 Year
  Sex: Female
  Weight: 103 kg

DRUGS (1)
  1. XENICAL [Suspect]
     Indication: OBESITY
     Route: 048
     Dates: start: 20060528, end: 20060929

REACTIONS (2)
  - BLINDNESS UNILATERAL [None]
  - MIGRAINE [None]
